FAERS Safety Report 10744212 (Version 1)
Quarter: 2015Q1

REPORT INFORMATION
  Report Type: Spontaneous
  Country: US (occurrence: None)
  Receive Date: 20150126
  Receipt Date: 20150126
  Transmission Date: 20150721
  Serious: Yes (Hospitalization)
  Sender: FDA-Public Use
  Company Number: None

PATIENT
  Age: 65 Year
  Sex: Male
  Weight: 89.9 kg

DRUGS (1)
  1. PENICILLIN [Suspect]
     Active Substance: PENICILLIN
     Indication: TOOTH ABSCESS
     Route: 048
     Dates: start: 20140721, end: 20140725

REACTIONS (2)
  - Oropharyngeal pain [None]
  - Obstructive airways disorder [None]

NARRATIVE: CASE EVENT DATE: 20140723
